FAERS Safety Report 6617448-7 (Version None)
Quarter: 2010Q1

REPORT INFORMATION
  Report Type: 
  Country: None (occurrence: None)
  Receive Date: 20100302
  Receipt Date: 20100212
  Transmission Date: 20100710
  Serious: Yes (Other)
  Sender: FDA-Public Use
  Company Number: 20100019

PATIENT
  Age: 86 Year
  Sex: Male
  Weight: 79.8331 kg

DRUGS (10)
  1. EPINEPHRINE [Suspect]
     Indication: CATARACT OPERATION
     Dosage: 0.25 ML ONCE INTRAOCULAR
     Route: 031
     Dates: start: 20091217, end: 20091217
  2. EPINEPHRINE [Suspect]
     Indication: CATARACT OPERATION
     Dosage: 0.25 ML ONCE INTRAOCULAR
     Route: 031
     Dates: start: 20091217, end: 20091217
  3. BSS [Concomitant]
  4. IOPIDINE [Concomitant]
  5. OMNIPRED [Concomitant]
  6. VIGAMOX [Concomitant]
  7. VISCOAT [Concomitant]
  8. 4% XYLOCAINE PF [Concomitant]
  9. TIMOLOL MALEATE [Concomitant]
  10. ANESTHESIA MEDICATIONS [Concomitant]

REACTIONS (3)
  - ENDOPHTHALMITIS [None]
  - OFF LABEL USE [None]
  - TOXIC ANTERIOR SEGMENT SYNDROME [None]
